FAERS Safety Report 7128420-5 (Version None)
Quarter: 2010Q4

REPORT INFORMATION
  Report Type: 
  Country: None (occurrence: None)
  Receive Date: 20101115
  Receipt Date: 20101029
  Transmission Date: 20110411
  Serious: Yes (Other)
  Sender: FDA-Public Use
  Company Number: 1000017232

PATIENT
  Age: 78 Year
  Sex: Female

DRUGS (1)
  1. MEMANTINE [Suspect]
     Indication: VASCULAR DEMENTIA
     Dosage: 20 MG (20 MG, 1 IN 1 D), ORAL
     Route: 048
     Dates: start: 20100601, end: 20100827

REACTIONS (4)
  - AGITATION [None]
  - CONFUSIONAL STATE [None]
  - HALLUCINATIONS, MIXED [None]
  - PSYCHOMOTOR HYPERACTIVITY [None]
